FAERS Safety Report 8125482-3 (Version None)
Quarter: 2012Q1

REPORT INFORMATION
  Report Type: 
  Country: None (occurrence: None)
  Receive Date: 20120209
  Receipt Date: 20120203
  Transmission Date: 20120608
  Serious: Yes (Hospitalization, Other)
  Sender: FDA-Public Use
  Company Number: US-PFIZER INC-2011146499

PATIENT
  Sex: Male

DRUGS (2)
  1. CHANTIX [Suspect]
     Indication: SMOKING CESSATION THERAPY
     Dosage: VARENICLINE STARTING MONTH PACK, VARENICLINE CONTINUING MONTH PACK
     Dates: start: 20070208, end: 20070401
  2. CHANTIX [Suspect]
     Dosage: UNK
     Dates: start: 20080201

REACTIONS (3)
  - DEPRESSION [None]
  - SUICIDAL IDEATION [None]
  - ANXIETY [None]
